FAERS Safety Report 8047386-7 (Version None)
Quarter: 2012Q1

REPORT INFORMATION
  Report Type: 
  Country: None (occurrence: None)
  Receive Date: 20120116
  Receipt Date: 20120102
  Transmission Date: 20120608
  Serious: Yes (Other)
  Sender: FDA-Public Use
  Company Number: DE-AMGEN-DEUCT2012000990

PATIENT
  Age: 13 Year
  Sex: Female

DRUGS (2)
  1. METHOTREXATE [Suspect]
     Dosage: UNK
     Dates: end: 20110101
  2. ENBREL [Suspect]
     Indication: JUVENILE ARTHRITIS
     Dosage: 75 MG, QWK
     Dates: start: 20090826

REACTIONS (1)
  - SKIN HAEMORRHAGE [None]
